FAERS Safety Report 4942303-8 (Version None)
Quarter: 2006Q1

REPORT INFORMATION
  Report Type: 
  Country: None (occurrence: None)
  Receive Date: 20060313
  Receipt Date: 20051118
  Transmission Date: 20060701
  Serious: No
  Sender: FDA-Public Use
  Company Number: US-GLAXOSMITHKLINE-A0582831A

PATIENT
  Age: 48 Year
  Sex: Female

DRUGS (1)
  1. NICORETTE (ORANGE) [Suspect]
     Dates: start: 20051117, end: 20051117

REACTIONS (1)
  - DIZZINESS [None]
